FAERS Safety Report 10186743 (Version 1)
Quarter: 2014Q2

REPORT INFORMATION
  Report Type: Spontaneous
  Country: JP (occurrence: JP)
  Receive Date: 20140521
  Receipt Date: 20140521
  Transmission Date: 20141212
  Serious: Yes (Other)
  Sender: FDA-Public Use
  Company Number: PHHY2014JP060317

PATIENT
  Sex: 0

DRUGS (1)
  1. TASIGNA [Suspect]
     Route: 048
     Dates: start: 201308

REACTIONS (2)
  - Anaemia [Unknown]
  - Incorrect drug administration duration [Unknown]
